FAERS Safety Report 5477186-3 (Version None)
Quarter: 2007Q4

REPORT INFORMATION
  Report Type: 
  Country: None (occurrence: None)
  Receive Date: 20071004
  Receipt Date: 20071001
  Transmission Date: 20080405
  Serious: Yes (Death)
  Sender: FDA-Public Use
  Company Number: A0685756A

PATIENT
  Age: 50 Year
  Sex: Male

DRUGS (3)
  1. ADVAIR DISKUS 100/50 [Suspect]
     Indication: ASTHMA
  2. CARDIAC MEDICATION [Concomitant]
  3. ASTHMA MEDICATION [Concomitant]

REACTIONS (2)
  - ASTHMA [None]
  - TREATMENT NONCOMPLIANCE [None]
